FAERS Safety Report 21700977 (Version 2)
Quarter: 2022Q4

REPORT INFORMATION
  Report Type: Spontaneous
  Country: FR (occurrence: None)
  Receive Date: 20221208
  Receipt Date: 20221220
  Transmission Date: 20230112
  Serious: Yes (Death, Hospitalization)
  Sender: FDA-Public Use
  Company Number: 2022A219256

PATIENT
  Age: 25937 Day
  Sex: Male
  Weight: 82.1 kg

DRUGS (1)
  1. IMFINZI [Suspect]
     Active Substance: DURVALUMAB
     Indication: Mediastinum neoplasm
     Route: 042
     Dates: start: 20220420, end: 20220420

REACTIONS (6)
  - Polymyositis [Fatal]
  - Myocarditis [Fatal]
  - Dermatomyositis [Unknown]
  - Hepatic cytolysis [Unknown]
  - Urinary incontinence [Unknown]
  - Urinary tract infection [Unknown]

NARRATIVE: CASE EVENT DATE: 20220517
